FAERS Safety Report 18537359 (Version 2)
Quarter: 2020Q4

REPORT INFORMATION
  Report Type: Spontaneous
  Country: DE (occurrence: DE)
  Receive Date: 20201124
  Receipt Date: 20201223
  Transmission Date: 20210114
  Serious: Yes (Other)
  Sender: FDA-Public Use
  Company Number: DE-AUROBINDO-AUR-APL-2020-057482

PATIENT
  Age: 34 Year
  Sex: Female
  Weight: 86 kg

DRUGS (3)
  1. AIMOVIG [Suspect]
     Active Substance: ERENUMAB-AOOE
     Indication: MIGRAINE
     Dosage: UNK 70MG+140MG (4 WEEKS)
     Route: 065
     Dates: start: 201907, end: 201912
  2. AIMOVIG [Suspect]
     Active Substance: ERENUMAB-AOOE
     Dosage: UNK 70MG+140MG (4 WEEKS)
     Route: 065
     Dates: start: 202003, end: 202008
  3. SUMATRIPTAN. [Suspect]
     Active Substance: SUMATRIPTAN
     Indication: MIGRAINE
     Dosage: UNK 50-100 , 10-15 X/MONAT
     Route: 065
     Dates: start: 201901

REACTIONS (3)
  - Hepatic enzyme increased [Not Recovered/Not Resolved]
  - Pancreatic failure [Not Recovered/Not Resolved]
  - Transaminases increased [Not Recovered/Not Resolved]

NARRATIVE: CASE EVENT DATE: 202008
